FAERS Safety Report 9115056 (Version 1)
Quarter: 2013Q1

REPORT INFORMATION
  Report Type: Spontaneous
  Country: US (occurrence: US)
  Receive Date: 20130208
  Receipt Date: 20130208
  Transmission Date: 20140127
  Serious: No
  Sender: FDA-Public Use
  Company Number: US-ASTRAZENECA-2013SE07941

PATIENT
  Age: 68 Year
  Sex: Female
  Weight: 90.7 kg

DRUGS (3)
  1. SYMBICORT [Suspect]
     Indication: BRONCHIAL WALL THICKENING
     Dosage: 160/4.5, 2 PUFFS, TWO TIMES A DAY
     Route: 055
  2. ORENICA [Concomitant]
     Indication: RHEUMATOID ARTHRITIS
     Dosage: WEEK
     Route: 058
  3. METHOTREXATE [Concomitant]
     Indication: RHEUMATOID ARTHRITIS
     Route: 058

REACTIONS (4)
  - Increased upper airway secretion [Unknown]
  - Dysphonia [Unknown]
  - Off label use [Unknown]
  - Intentional drug misuse [Unknown]
